FAERS Safety Report 24580073 (Version 1)
Quarter: 2024Q4

REPORT INFORMATION
  Report Type: Spontaneous
  Country: US (occurrence: None)
  Receive Date: 20241104
  Receipt Date: 20241104
  Transmission Date: 20250115
  Serious: No
  Sender: Public
  Company Number: None

PATIENT
  Age: 56 Year
  Sex: Male
  Weight: 108 kg

DRUGS (1)
  1. PACLITAXEL [Suspect]
     Active Substance: PACLITAXEL
     Indication: Neoplasm malignant
     Dosage: OTHER FREQUENCY : ONCE;?
     Route: 042
     Dates: start: 20240625, end: 20240625

REACTIONS (7)
  - Back pain [None]
  - Chest pain [None]
  - Dizziness [None]
  - Flushing [None]
  - Dyspnoea [None]
  - Vomiting [None]
  - Nausea [None]

NARRATIVE: CASE EVENT DATE: 20240625
